FAERS Safety Report 7029540-6 (Version None)
Quarter: 2010Q3

REPORT INFORMATION
  Report Type: 
  Country: None (occurrence: None)
  Receive Date: 20100930
  Receipt Date: 20100915
  Transmission Date: 20110219
  Serious: Yes (Other)
  Sender: FDA-Public Use
  Company Number: 018864

PATIENT
  Sex: Female
  Weight: 46 kg

DRUGS (9)
  1. CIMZIA [Suspect]
     Indication: CROHN'S DISEASE
     Dosage: (400 MG 1X/MONTH SUBCUTANEOUS)
     Route: 058
     Dates: start: 20100601
  2. ASACOL [Concomitant]
  3. FOLIC ACID [Concomitant]
  4. WELCHOL [Concomitant]
  5. CALCIUM [Concomitant]
  6. IMODIUM /01493801/ [Concomitant]
  7. ATIVAN [Concomitant]
  8. POTASSIUM [Concomitant]
  9. CETIRIZINE HCL [Concomitant]

REACTIONS (8)
  - ABDOMINAL PAIN [None]
  - DEFAECATION URGENCY [None]
  - DRUG EFFECT DECREASED [None]
  - FATIGUE [None]
  - FREQUENT BOWEL MOVEMENTS [None]
  - HEADACHE [None]
  - PSORIASIS [None]
  - SOMNOLENCE [None]
